FAERS Safety Report 23799665 (Version 2)
Quarter: 2024Q2

REPORT INFORMATION
  Report Type: Report from Study
  Country: TW (occurrence: TW)
  Receive Date: 20240430
  Receipt Date: 20240509
  Transmission Date: 20240716
  Serious: Yes (Other)
  Sender: FDA-Public Use
  Company Number: TW-GILEAD-2024-0670909

PATIENT
  Age: 67 Year
  Sex: Female

DRUGS (1)
  1. SACITUZUMAB GOVITECAN-HZIY [Suspect]
     Active Substance: SACITUZUMAB GOVITECAN-HZIY
     Indication: Hormone receptor positive breast cancer
     Dosage: 180 MG
     Route: 042
     Dates: start: 20240313

REACTIONS (3)
  - Metastases to lymph nodes [Unknown]
  - Fatigue [Unknown]
  - Road traffic accident [Unknown]

NARRATIVE: CASE EVENT DATE: 20240423
